FAERS Safety Report 8799464 (Version 1)
Quarter: 2012Q4

REPORT INFORMATION
  Report Type: Spontaneous
  Country: US (occurrence: None)
  Receive Date: 20120918
  Receipt Date: 20120918
  Transmission Date: 20130627
  Serious: Yes (Other)
  Sender: FDA-Public Use
  Company Number: None

PATIENT
  Age: 34 Year
  Sex: Male
  Weight: 77.11 kg

DRUGS (1)
  1. VIVITROL [Suspect]
     Dosage: 380mg every 4 weeks IM
     Route: 030
     Dates: start: 20120730, end: 20120910

REACTIONS (2)
  - Gallbladder disorder [None]
  - Rash [None]
